FAERS Safety Report 5160674-7 (Version None)
Quarter: 2006Q4

REPORT INFORMATION
  Report Type: 
  Country: None (occurrence: None)
  Receive Date: 20061121
  Receipt Date: 20061108
  Transmission Date: 20070319
  Serious: Yes (Hospitalization)
  Sender: FDA-Public Use
  Company Number: 232344

PATIENT
  Age: 29 Year
  Sex: Female
  Weight: 130 kg

DRUGS (3)
  1. BEVACIZUMAB OR PLACEBO (BEVACIZUMAB) PWDR + SOLVENT, INFUSION SOLN, 10 [Suspect]
     Indication: BREAST CANCER METASTATIC
     Dosage: 1950 MG, Q3W, INTRAVENOUS
     Route: 042
     Dates: start: 20060905, end: 20061024
  2. BEVACIZUMAB OR PLACEBO (BEVACIZUMAB) PWDR + SOLVENT, INFUSION SOLN, 10 [Suspect]
  3. TAXOTERE [Suspect]
     Indication: BREAST CANCER METASTATIC
     Dates: start: 20060905, end: 20061024

REACTIONS (2)
  - BREAST INFECTION [None]
  - CELLULITIS [None]
